FAERS Safety Report 5195634-3 (Version None)
Quarter: 2006Q4

REPORT INFORMATION
  Report Type: 
  Country: None (occurrence: None)
  Receive Date: 20061222
  Receipt Date: 20061222
  Transmission Date: 20070319
  Serious: Yes (Other)
  Sender: FDA-Public Use
  Company Number: None

PATIENT
  Sex: Female

DRUGS (9)
  1. REVLIMID [Suspect]
     Indication: MYELODYSPLASTIC SYNDROME
     Dosage: 10MG DAILY FOR 21 DAYS PO
     Route: 048
     Dates: start: 20061031, end: 20061221
  2. CLONAZEPAM [Concomitant]
  3. ZOCOR [Concomitant]
  4. QVAR 40 [Concomitant]
  5. PROCRIT [Concomitant]
  6. FAMOTIDINE [Concomitant]
  7. VICODIN [Concomitant]
  8. LOMOTIL [Concomitant]
  9. COMBIVENT [Concomitant]

REACTIONS (1)
  - WHITE BLOOD CELL COUNT DECREASED [None]
